FAERS Safety Report 8833958 (Version 1)
Quarter: 2012Q4

REPORT INFORMATION
  Report Type: 
  Country: US (occurrence: US)
  Receive Date: 20121010
  Receipt Date: 20121010
  Transmission Date: 20130627
  Serious: No
  Sender: FDA-Public Use
  Company Number: US-VERTEX PHARMACEUTICAL INC.-2012-022147

PATIENT
  Sex: Male
  Weight: 75 kg

DRUGS (5)
  1. VX-950 [Suspect]
     Indication: HEPATITIS C
     Dosage: 750 mg, tid
     Route: 048
     Dates: start: 20120525
  2. PEGINTRON                          /01543001/ [Concomitant]
     Indication: HEPATITIS C
     Dosage: 120 ?g, qw
     Route: 058
     Dates: start: 20120525
  3. RIBAVIRIN [Concomitant]
     Indication: HEPATITIS C
     Dosage: 400 mg in AM, 600 mg in PM
     Route: 048
     Dates: start: 20120525
  4. RIBAVIRIN [Concomitant]
     Dosage: 600 mg, qd
  5. RIBAVIRIN [Concomitant]
     Dosage: 1000 mg, qd

REACTIONS (2)
  - Fatigue [Unknown]
  - Anaemia [Unknown]
